FAERS Safety Report 19101950 (Version 1)
Quarter: 2021Q2

REPORT INFORMATION
  Report Type: Spontaneous
  Country: CH (occurrence: CH)
  Receive Date: 20210407
  Receipt Date: 20210407
  Transmission Date: 20210717
  Serious: Yes (Other)
  Sender: FDA-Public Use
  Company Number: CH-STRIDES ARCOLAB LIMITED-2021SP004038

PATIENT
  Age: 76 Year
  Sex: Female

DRUGS (4)
  1. VISMODEGIB. [Suspect]
     Active Substance: VISMODEGIB
     Indication: BASAL CELL CARCINOMA
     Dosage: UNK
     Route: 065
  2. VISMODEGIB. [Suspect]
     Active Substance: VISMODEGIB
     Dosage: UNK
     Route: 065
     Dates: start: 2018
  3. ITRACONAZOLE. [Suspect]
     Active Substance: ITRACONAZOLE
     Indication: BASAL CELL CARCINOMA
     Dosage: 100 MILLIGRAM, DAILY 2 WEEKS ON AND 2 WEEKS OFF WAS ADDED
     Route: 065
  4. ITRACONAZOLE. [Suspect]
     Active Substance: ITRACONAZOLE
     Dosage: UNK
     Route: 065
     Dates: start: 2018

REACTIONS (2)
  - Off label use [Unknown]
  - Influenza like illness [Unknown]
